FAERS Safety Report 7077714-0 (Version None)
Quarter: 2010Q4

REPORT INFORMATION
  Report Type: 
  Country: None (occurrence: None)
  Receive Date: 20101101
  Receipt Date: 20101022
  Transmission Date: 20110411
  Serious: Yes (Other)
  Sender: FDA-Public Use
  Company Number: US-BAYER-201022370BCC

PATIENT
  Age: 79 Year
  Sex: Female
  Weight: 61 kg

DRUGS (5)
  1. ALEVE (CAPLET) [Suspect]
     Dosage: TOTAL DAILY DOSE: 440 MG  UNIT DOSE: 220 MG
     Route: 048
     Dates: start: 20101020, end: 20101020
  2. ALEVE (CAPLET) [Suspect]
     Dosage: TOTAL DAILY DOSE: 880 MG  UNIT DOSE: 220 MG
     Route: 048
     Dates: start: 20101021
  3. CORTISONE [Concomitant]
     Dates: start: 20101020
  4. FOSAMAX [Concomitant]
  5. OS-CAL [Concomitant]

REACTIONS (5)
  - ERYTHEMA [None]
  - FEELING HOT [None]
  - HYPERSENSITIVITY [None]
  - HYPOAESTHESIA ORAL [None]
  - SWOLLEN TONGUE [None]
